FAERS Safety Report 18383071 (Version 1)
Quarter: 2020Q4

REPORT INFORMATION
  Report Type: Spontaneous
  Country: US (occurrence: US)
  Receive Date: 20201014
  Receipt Date: 20201014
  Transmission Date: 20210114
  Serious: Yes (Other)
  Sender: FDA-Public Use
  Company Number: None

PATIENT
  Age: 51 Year
  Sex: Male
  Weight: 104 kg

DRUGS (5)
  1. GUAIFENESIN. [Concomitant]
     Active Substance: GUAIFENESIN
     Dates: start: 20201007
  2. BENZONATATE. [Concomitant]
     Active Substance: BENZONATATE
     Dates: start: 20201010
  3. PREGABALIN. [Concomitant]
     Active Substance: PREGABALIN
     Dates: start: 20201004
  4. INSULUN [Concomitant]
     Dates: start: 20201010
  5. REMDESIVIR. [Suspect]
     Active Substance: REMDESIVIR
     Indication: COVID-19
     Route: 041
     Dates: start: 20201007, end: 20201012

REACTIONS (2)
  - Aspartate aminotransferase increased [None]
  - Alanine aminotransferase increased [None]

NARRATIVE: CASE EVENT DATE: 20201007
